FAERS Safety Report 17055278 (Version 6)
Quarter: 2020Q2

REPORT INFORMATION
  Report Type: Report from Study
  Country: US (occurrence: US)
  Receive Date: 20191120
  Receipt Date: 20200402
  Transmission Date: 20200713
  Serious: Yes (Hospitalization)
  Sender: FDA-Public Use
  Company Number: US-ACTELION-A-US2017-162041

PATIENT
  Age: 57 Year
  Sex: Female
  Weight: 85.71 kg

DRUGS (5)
  1. OPSUMIT [Suspect]
     Active Substance: MACITENTAN
     Indication: PULMONARY ARTERIAL HYPERTENSION
     Dosage: 10 MG, QD
     Route: 048
  2. SILDENAFIL. [Concomitant]
     Active Substance: SILDENAFIL
     Indication: PULMONARY ARTERIAL HYPERTENSION
  3. CHLORAPREP [Suspect]
     Active Substance: CHLORHEXIDINE GLUCONATE\ISOPROPYL ALCOHOL
     Indication: PRODUCT USED FOR UNKNOWN INDICATION
     Route: 065
  4. TYVASO [Concomitant]
     Active Substance: TREPROSTINIL
     Dosage: 12 BREATHS 4 TIMES DAILY
  5. REMODULIN [Suspect]
     Active Substance: TREPROSTINIL
     Indication: PRODUCT USED FOR UNKNOWN INDICATION
     Dosage: 19 NG/KG
     Route: 042

REACTIONS (23)
  - Dry mouth [Unknown]
  - Migraine [Unknown]
  - Depression [Unknown]
  - Emergency care [Unknown]
  - Device dislocation [Unknown]
  - Nausea [Unknown]
  - Drooling [Unknown]
  - Chest discomfort [Unknown]
  - Loss of consciousness [Unknown]
  - Headache [Unknown]
  - Syncope [Unknown]
  - Pulmonary arterial pressure [Unknown]
  - Drug intolerance [Unknown]
  - Vomiting [Unknown]
  - Congestive cardiomyopathy [Unknown]
  - Vascular device infection [Unknown]
  - Throat irritation [Unknown]
  - Dyspnoea [Recovering/Resolving]
  - Diarrhoea [Recovering/Resolving]
  - Therapy change [Unknown]
  - Product dose omission [Unknown]
  - Condition aggravated [Unknown]
  - Pain in extremity [Unknown]

NARRATIVE: CASE EVENT DATE: 20190605
